FAERS Safety Report 6114027-5 (Version None)
Quarter: 2009Q1

REPORT INFORMATION
  Report Type: 
  Country: None (occurrence: None)
  Receive Date: 20090312
  Receipt Date: 20090305
  Transmission Date: 20090719
  Serious: Yes (Other)
  Sender: FDA-Public Use
  Company Number: US-ABBOTT-09P-163-0560714-00

PATIENT
  Age: 8 Year

DRUGS (4)
  1. LUPRON DEPOT [Suspect]
     Indication: PRECOCIOUS PUBERTY
     Dosage: ONCE
     Dates: start: 20090101, end: 20090101
  2. LUPRON DEPOT [Suspect]
     Indication: PRECOCIOUS PUBERTY
     Dates: start: 20080101, end: 20090101
  3. LUPRON DEPOT [Suspect]
     Dates: start: 20090101, end: 20090101
  4. LUPRON DEPOT [Suspect]
     Dates: start: 20080101, end: 20090101

REACTIONS (3)
  - ANAPHYLACTIC REACTION [None]
  - DYSPNOEA [None]
  - URTICARIA [None]
